FAERS Safety Report 5470691-5 (Version None)
Quarter: 2007Q3

REPORT INFORMATION
  Report Type: 
  Country: None (occurrence: None)
  Receive Date: 20070928
  Receipt Date: 20070924
  Transmission Date: 20080115
  Serious: Yes (Other)
  Sender: FDA-Public Use
  Company Number: US-ASTRAZENECA-2007UW14262

PATIENT
  Age: 55 Year
  Sex: Male
  Weight: 99.8 kg

DRUGS (12)
  1. ENTOCORT EC [Suspect]
     Indication: COLITIS
     Dosage: 3 DOSES
     Route: 048
  2. LOTREL [Concomitant]
  3. ATENOLOL [Concomitant]
  4. PENTASA [Concomitant]
     Indication: COLITIS
  5. ASPIRIN [Concomitant]
  6. OMEGA 3 [Concomitant]
  7. MULTI-VITAMIN [Concomitant]
  8. COQ10 [Concomitant]
  9. NIACIN [Concomitant]
  10. CLONAZEPAM [Concomitant]
  11. ETODOLAC [Concomitant]
  12. CHERRY EXTRACT [Concomitant]

REACTIONS (2)
  - CATARACT [None]
  - HYPERTENSION [None]
